FAERS Safety Report 16819565 (Version 1)
Quarter: 2019Q3

REPORT INFORMATION
  Report Type: Report from Study
  Country: US (occurrence: US)
  Receive Date: 20190917
  Receipt Date: 20190917
  Transmission Date: 20191005
  Serious: Yes (Hospitalization)
  Sender: FDA-Public Use
  Company Number: US-ACTELION-A-US2018-181886

PATIENT
  Age: 69 Year
  Sex: Female
  Weight: 77.1 kg

DRUGS (4)
  1. VELETRI [Suspect]
     Active Substance: EPOPROSTENOL
     Dosage: 30 NG/KG, PER MIN
     Route: 042
  2. VELETRI [Suspect]
     Active Substance: EPOPROSTENOL
     Indication: PULMONARY HYPERTENSION
     Dosage: 8 NG/KG, PER MIN
     Route: 042
  3. VELETRI [Suspect]
     Active Substance: EPOPROSTENOL
     Dosage: 20 NG/KG, PER MIN
     Route: 042
  4. VELETRI [Suspect]
     Active Substance: EPOPROSTENOL
     Dosage: 13 NG/KG, PER MIN
     Route: 042

REACTIONS (28)
  - Pain in jaw [Unknown]
  - Gastric disorder [Unknown]
  - Vomiting [Recovering/Resolving]
  - Pulmonary arterial hypertension [Unknown]
  - Diarrhoea [Unknown]
  - Dyspnoea [Not Recovered/Not Resolved]
  - Loss of consciousness [Unknown]
  - Head injury [Unknown]
  - Decreased appetite [Unknown]
  - Catheter management [Unknown]
  - Oedema [Unknown]
  - Product dose omission [Recovered/Resolved]
  - Oxygen saturation decreased [Unknown]
  - Device alarm issue [Unknown]
  - Ear pain [Unknown]
  - Malaise [Recovering/Resolving]
  - Device leakage [Recovered/Resolved]
  - Feeling abnormal [Recovering/Resolving]
  - Asthenia [Recovering/Resolving]
  - Feeling cold [Unknown]
  - Condition aggravated [Unknown]
  - Tachycardia [Unknown]
  - Dyspnoea exertional [Recovering/Resolving]
  - Abdominal pain upper [Unknown]
  - Abdominal pain [Unknown]
  - Device dislocation [Unknown]
  - Bladder disorder [Unknown]
  - Fatigue [Not Recovered/Not Resolved]

NARRATIVE: CASE EVENT DATE: 201812
